FAERS Safety Report 5569133-0 (Version None)
Quarter: 2007Q4

REPORT INFORMATION
  Report Type: 
  Country: None (occurrence: None)
  Receive Date: 20071220
  Receipt Date: 20070824
  Transmission Date: 20080405
  Serious: No
  Sender: FDA-Public Use
  Company Number: A0666769A

PATIENT
  Age: 78 Year
  Sex: Male

DRUGS (7)
  1. AVODART [Suspect]
     Indication: BENIGN PROSTATIC HYPERPLASIA
     Dosage: 2CAP PER DAY
     Route: 048
     Dates: end: 20070501
  2. ACTOS [Concomitant]
  3. DIABETA [Concomitant]
  4. LEVOXYL [Concomitant]
  5. ZESTRIL [Concomitant]
  6. GABAPENTIN [Concomitant]
  7. INSULIN [Concomitant]

REACTIONS (4)
  - BREAST ENLARGEMENT [None]
  - BREAST PAIN [None]
  - DRUG INEFFECTIVE [None]
  - OVERDOSE [None]
